FAERS Safety Report 10179704 (Version 2)
Quarter: 2014Q2

REPORT INFORMATION
  Report Type: Report from Study
  Country: CA (occurrence: CA)
  Receive Date: 20140519
  Receipt Date: 20140611
  Transmission Date: 20141212
  Serious: Yes (Hospitalization, Other)
  Sender: FDA-Public Use
  Company Number: CA-GILEAD-2014-0102580

PATIENT
  Age: 57 Year
  Sex: Male

DRUGS (1)
  1. TENOFOVIR DISOPROXIL FUMARATE [Suspect]
     Indication: HEPATITIS B
     Dosage: 300 MG, UNK
     Route: 048
     Dates: start: 2014

REACTIONS (6)
  - Cardiac operation [Unknown]
  - Cardiac disorder [Unknown]
  - Unevaluable event [Unknown]
  - Hypoaesthesia [Unknown]
  - Renal disorder [Unknown]
  - Liver disorder [Unknown]
